FAERS Safety Report 4338628-X (Version None)
Quarter: 2004Q2

REPORT INFORMATION
  Report Type: 
  Country: None (occurrence: None)
  Receive Date: 20040409
  Receipt Date: 20040401
  Transmission Date: 20050107
  Serious: Yes (Other)
  Sender: FDA-Public Use
  Company Number: US-JNJFOC-20040400633

PATIENT
  Age: 42 Year
  Sex: Female
  Weight: 83.4619 kg

DRUGS (2)
  1. TOPAMAX [Suspect]
     Indication: CONVULSION
     Dosage: 100 MG,  IN 1 DAY, ORAL;  50 MG,  IN 1 DAY, ORAL
     Route: 048
     Dates: start: 20030901
  2. TRILEPTAL [Concomitant]

REACTIONS (4)
  - ABNORMAL SENSATION IN EYE [None]
  - ASTHMA [None]
  - VISION BLURRED [None]
  - WEIGHT DECREASED [None]
